FAERS Safety Report 12850228 (Version 2)
Quarter: 2016Q4

REPORT INFORMATION
  Report Type: Spontaneous
  Country: US (occurrence: US)
  Receive Date: 20161014
  Receipt Date: 20161017
  Transmission Date: 20170207
  Serious: No
  Sender: FDA-Public Use
  Company Number: US-PFIZER INC-2016479044

PATIENT
  Age: 54 Year
  Sex: Female
  Weight: 63.5 kg

DRUGS (1)
  1. XELJANZ XR [Suspect]
     Active Substance: TOFACITINIB CITRATE
     Dosage: 11 MG, 1X/DAY
     Route: 048
     Dates: start: 2016

REACTIONS (8)
  - Musculoskeletal stiffness [Unknown]
  - Drug ineffective [Unknown]
  - Bedridden [Unknown]
  - Pain [Unknown]
  - Swelling [Unknown]
  - Activities of daily living impaired [Unknown]
  - Gait disturbance [Unknown]
  - Grip strength decreased [Unknown]
